FAERS Safety Report 20479695 (Version 1)
Quarter: 2022Q1

REPORT INFORMATION
  Report Type: Spontaneous
  Country: CA (occurrence: CA)
  Receive Date: 20220216
  Receipt Date: 20220216
  Transmission Date: 20220423
  Serious: Yes (Death, Other)
  Sender: FDA-Public Use
  Company Number: CA-PFIZER INC-2021829792

PATIENT
  Age: 51 Year
  Sex: Female
  Weight: 61.2 kg

DRUGS (12)
  1. INLYTA [Suspect]
     Active Substance: AXITINIB
     Indication: Metastatic renal cell carcinoma
     Dosage: 5 MG, QUANTITY: 30DAYS, REPEAT : 11
  2. INLYTA [Suspect]
     Active Substance: AXITINIB
     Dosage: 5 MG, 2X/DAY (TAKE 1 TABLET (5 MG TOTAL) BY MOUTH 2 TIMES A DAY)
     Route: 048
     Dates: start: 20210706, end: 20210805
  3. INLYTA [Suspect]
     Active Substance: AXITINIB
     Dosage: 5 MG, 2X/DAY (TAKE 1 TABLET (5 MG TOTAL) BY MOUTH 2 TIMES A DAY)
     Route: 048
     Dates: start: 20210713
  4. INLYTA [Suspect]
     Active Substance: AXITINIB
     Dosage: 5 MG, 2X/DAY (TAKE 1 TABLET (5 MG TOTAL) BY MOUTH 2 TIMES A DAY)
     Route: 048
     Dates: start: 20210809
  5. INLYTA [Suspect]
     Active Substance: AXITINIB
     Dosage: 5 MG, 2X/DAY (TAKE 1 TABLET (5 MG TOTAL) BY MOUTH 2 TIMES A DAY)
     Route: 048
     Dates: start: 20210831
  6. INLYTA [Suspect]
     Active Substance: AXITINIB
     Dosage: 5 MG, 2X/DAY (TAKE 1 TABLET (5 MG TOTAL) BY MOUTH 2 TIMES A DAY)
     Route: 048
     Dates: start: 20210921
  7. INLYTA [Suspect]
     Active Substance: AXITINIB
     Dosage: 5 MG, 2X/DAY (TAKE 1 TABLET (5 MG TOTAL) BY MOUTH 2 TIMES A DAY)
     Route: 048
     Dates: start: 20211012
  8. INLYTA [Suspect]
     Active Substance: AXITINIB
     Dosage: 5 MG, 2X/DAY (TAKE 1 TABLET (5 MG TOTAL) BY MOUTH 2 TIMES A DAY)
     Route: 048
     Dates: start: 20211123
  9. INLYTA [Suspect]
     Active Substance: AXITINIB
     Dosage: 5 MG, 2X/DAY (TAKE 1 TABLET (5 MG TOTAL) BY MOUTH 2 TIMES A DAY)
     Route: 048
     Dates: start: 20211214
  10. INLYTA [Suspect]
     Active Substance: AXITINIB
     Dosage: 5 MG, 2X/DAY
     Route: 048
     Dates: start: 20220105
  11. KEYTRUDA [Concomitant]
     Active Substance: PEMBROLIZUMAB
     Dosage: UNK
  12. PEMBROLIZUMAB [Concomitant]
     Active Substance: PEMBROLIZUMAB
     Dosage: UNK

REACTIONS (4)
  - Death [Fatal]
  - Weight decreased [Recovering/Resolving]
  - Body surface area decreased [Unknown]
  - Off label use [Unknown]

NARRATIVE: CASE EVENT DATE: 20210809
